FAERS Safety Report 5202131-5 (Version None)
Quarter: 2007Q1

REPORT INFORMATION
  Report Type: 
  Country: None (occurrence: None)
  Receive Date: 20070109
  Receipt Date: 20070105
  Transmission Date: 20070707
  Serious: Yes (Hospitalization)
  Sender: FDA-Public Use
  Company Number: KR-BAYER-200612535GDS

PATIENT
  Age: 50 Year
  Sex: Female
  Weight: 52 kg

DRUGS (10)
  1. SORAFENIB [Suspect]
     Indication: HEPATIC NEOPLASM MALIGNANT
     Dosage: TOTAL DAILY DOSE: 800 MG
     Route: 048
     Dates: start: 20060315, end: 20060416
  2. SORAFENIB [Suspect]
     Dosage: TOTAL DAILY DOSE: 400 MG
     Route: 048
     Dates: start: 20060426, end: 20060525
  3. MUCALGEL (MAG., CAL., ALUMINIUM, SILICATE) [Concomitant]
     Indication: DYSPEPSIA
     Route: 048
     Dates: start: 20060616
  4. GASTREK GRAN (ECABET SODIUM) [Concomitant]
     Indication: DYSPEPSIA
     Route: 048
     Dates: start: 20060616
  5. K-40 (POTASSIUM CHLORIDE) [Concomitant]
     Indication: HYPOKALAEMIA
     Route: 042
     Dates: start: 20060617, end: 20060617
  6. MUCOSTA [Concomitant]
     Indication: DYSPEPSIA
     Route: 048
     Dates: start: 20060616
  7. MACPERAN (METOCLOPRAMIDE) [Concomitant]
     Indication: ANTIEMETIC SUPPORTIVE CARE
     Route: 048
     Dates: start: 20060616
  8. RESPILENE SYRUP [Concomitant]
     Indication: COUGH
     Route: 048
     Dates: start: 20060616, end: 20060618
  9. CODEIN PHOSPHATE [Concomitant]
     Indication: PAIN MANAGEMENT
     Route: 048
     Dates: start: 20060616, end: 20060618
  10. ERDOS (ERDOSTEINE) [Concomitant]
     Indication: PRODUCTIVE COUGH
     Route: 048
     Dates: start: 20060616, end: 20060618

REACTIONS (1)
  - DYSPNOEA [None]
